FAERS Safety Report 9100910 (Version 1)
Quarter: 2013Q1

REPORT INFORMATION
  Report Type: Spontaneous
  Country: FR (occurrence: FR)
  Receive Date: 20130215
  Receipt Date: 20130215
  Transmission Date: 20140127
  Serious: Yes (Hospitalization)
  Sender: FDA-Public Use
  Company Number: PHHY2013FR014744

PATIENT
  Age: 80 Year
  Sex: Male

DRUGS (7)
  1. ZOMETA [Suspect]
     Indication: METASTASES TO BONE
     Dosage: UNK UKN, UNK
     Route: 042
     Dates: end: 201204
  2. PLAVIX [Concomitant]
     Indication: HAEMORRHAGIC STROKE
     Dosage: UNK UKN, UNK
     Route: 048
  3. TEMERIT [Concomitant]
     Indication: HYPERTENSION
     Dosage: UNK UKN, UNK
     Route: 048
  4. PREDNISOLONE [Concomitant]
     Indication: PROSTATE CANCER
     Dosage: UNK UKN, UNK
     Route: 048
  5. DUROGESIC [Concomitant]
     Indication: PAIN
     Dosage: UNK UKN, UNK
     Route: 062
  6. DECAPEPTYL//TRIPTORELIN ACETATE [Concomitant]
     Indication: PROSTATE CANCER
     Dosage: UNK UKN, UNK
     Route: 030
  7. ZYTIGA [Concomitant]
     Dosage: 250 MG, UNK
     Route: 048

REACTIONS (1)
  - Osteonecrosis of jaw [Not Recovered/Not Resolved]
